FAERS Safety Report 8194259-5 (Version None)
Quarter: 2012Q1

REPORT INFORMATION
  Report Type: 
  Country: None (occurrence: None)
  Receive Date: 20120308
  Receipt Date: 20120228
  Transmission Date: 20120608
  Serious: Yes (Other)
  Sender: FDA-Public Use
  Company Number: HR-ASTRAZENECA-2012SE13946

PATIENT
  Sex: Male

DRUGS (1)
  1. BUDESONIDE [Suspect]
     Indication: CROHN'S DISEASE
     Route: 048

REACTIONS (1)
  - ENDOCARDITIS BACTERIAL [None]
